FAERS Safety Report 13776822 (Version 2)
Quarter: 2017Q4

REPORT INFORMATION
  Report Type: Spontaneous
  Country: IT (occurrence: IT)
  Receive Date: 20170721
  Receipt Date: 20171006
  Transmission Date: 20180320
  Serious: Yes (Hospitalization, Other)
  Sender: FDA-Public Use
  Company Number: IT-REGENERON PHARMACEUTICALS, INC.-2017-18875

PATIENT

DRUGS (2)
  1. POVIDONE-IODINE. [Concomitant]
     Active Substance: POVIDONE-IODINE
     Indication: PRODUCT USED FOR UNKNOWN INDICATION
  2. EYLEA [Suspect]
     Active Substance: AFLIBERCEPT
     Indication: DIABETIC RETINAL OEDEMA
     Dosage: 2 MG, CYCLICAL. TOTAL OF INJECTION PRIOR ENDOPHTALMITIS: 4. LAST DOSE PRIOR ENDOPHTALMITIS: 15-MAY-2
     Route: 031
     Dates: start: 20170515, end: 20170515

REACTIONS (3)
  - Endophthalmitis [Recovering/Resolving]
  - Vitreous haemorrhage [Recovering/Resolving]
  - Blindness unilateral [Recovering/Resolving]

NARRATIVE: CASE EVENT DATE: 20170522
